FAERS Safety Report 13331179 (Version 1)
Quarter: 2017Q1

REPORT INFORMATION
  Report Type: Other
  Country: US (occurrence: US)
  Receive Date: 20170313
  Receipt Date: 20170313
  Transmission Date: 20170428
  Serious: No
  Sender: FDA-Public Use
  Company Number: US-COL_23492_2016

PATIENT
  Age: 64 Year
  Sex: Female

DRUGS (1)
  1. PERIOGARD [Suspect]
     Active Substance: CHLORHEXIDINE GLUCONATE
     Indication: INFECTION PROPHYLAXIS
     Dosage: SMALL MOUTHFUL/BID OR TID/
     Route: 048
     Dates: start: 20160720

REACTIONS (3)
  - Tongue discolouration [Not Recovered/Not Resolved]
  - Tongue coated [Not Recovered/Not Resolved]
  - Mouth swelling [Not Recovered/Not Resolved]

NARRATIVE: CASE EVENT DATE: 20160722
